FAERS Safety Report 17706426 (Version 1)
Quarter: 2020Q2

REPORT INFORMATION
  Report Type: Report from Study
  Country: BR (occurrence: BR)
  Receive Date: 20200424
  Receipt Date: 20200424
  Transmission Date: 20200714
  Serious: Yes (Hospitalization)
  Sender: FDA-Public Use
  Company Number: PHHY2019BR091573

PATIENT
  Age: 54 Year
  Sex: Female

DRUGS (2)
  1. COSENTYX [Suspect]
     Active Substance: SECUKINUMAB
     Indication: PSORIATIC ARTHROPATHY
     Dosage: 300 MG, UNKNOWN
     Route: 065
     Dates: start: 20170922
  2. COSENTYX [Suspect]
     Active Substance: SECUKINUMAB
     Dosage: 300 MG, UNKNOWN
     Route: 065
     Dates: start: 20200305

REACTIONS (13)
  - Keloid scar [Unknown]
  - Nail psoriasis [Recovered/Resolved]
  - Overweight [Unknown]
  - Psoriasis [Recovered/Resolved]
  - Strangulated hernia [Unknown]
  - Abdominal discomfort [Unknown]
  - Influenza [Unknown]
  - Malaise [Unknown]
  - Impaired healing [Unknown]
  - Nail disorder [Recovered/Resolved]
  - Trigger finger [Recovered/Resolved]
  - Arthralgia [Recovered/Resolved]
  - Pain [Recovered/Resolved]

NARRATIVE: CASE EVENT DATE: 201911
